FAERS Safety Report 7013085-3 (Version None)
Quarter: 2010Q3

REPORT INFORMATION
  Report Type: 
  Country: None (occurrence: None)
  Receive Date: 20100924
  Receipt Date: 20100917
  Transmission Date: 20110219
  Serious: Yes (Other)
  Sender: FDA-Public Use
  Company Number: AU-PFIZER INC-2010118322

PATIENT
  Sex: Male

DRUGS (3)
  1. LIPITOR [Suspect]
     Dosage: 80 MG, UNK
  2. PROBENECID [Interacting]
     Dosage: UNK
  3. AUGMENTIN '125' [Concomitant]
     Dosage: UNK

REACTIONS (3)
  - BLOOD CREATINE PHOSPHOKINASE INCREASED [None]
  - DRUG INTERACTION [None]
  - MYALGIA [None]
